FAERS Safety Report 24002792 (Version 1)
Quarter: 2024Q2

REPORT INFORMATION
  Report Type: Spontaneous
  Country: US (occurrence: US)
  Receive Date: 20240624
  Receipt Date: 20240624
  Transmission Date: 20240715
  Serious: No
  Sender: FDA-Public Use
  Company Number: US-AUROBINDO-AUR-APL-2023-056444

PATIENT
  Age: 31 Year
  Sex: Female
  Weight: 81.633 kg

DRUGS (1)
  1. IBUPROFEN [Suspect]
     Active Substance: IBUPROFEN
     Indication: Pain
     Dosage: UNK (EVERY 6 HOURS)
     Route: 065

REACTIONS (1)
  - Rash [Not Recovered/Not Resolved]
